FAERS Safety Report 26108393 (Version 2)
Quarter: 2025Q4

REPORT INFORMATION
  Report Type: Spontaneous
  Country: US (occurrence: US)
  Receive Date: 20251201
  Receipt Date: 20251202
  Transmission Date: 20260117
  Serious: No
  Sender: PFIZER
  Company Number: US-PFIZER INC-202500230207

PATIENT
  Age: 77 Year
  Sex: Male

DRUGS (2)
  1. ELRANATAMAB [Suspect]
     Active Substance: ELRANATAMAB
     Indication: Plasma cell myeloma
     Dosage: UNK
  2. ELRANATAMAB [Suspect]
     Active Substance: ELRANATAMAB
     Dosage: UNK
     Dates: start: 20251120

REACTIONS (3)
  - Somnolence [Recovered/Resolved]
  - Confusional state [Recovered/Resolved]
  - Fatigue [Recovered/Resolved]

NARRATIVE: CASE EVENT DATE: 20251106
